FAERS Safety Report 5151547-4 (Version None)
Quarter: 2006Q4

REPORT INFORMATION
  Report Type: 
  Country: None (occurrence: None)
  Receive Date: 20061115
  Receipt Date: 20061031
  Transmission Date: 20070319
  Serious: Yes (Other)
  Sender: FDA-Public Use
  Company Number: US-ELI_LILLY_AND_COMPANY-US200611000213

PATIENT
  Sex: Female

DRUGS (8)
  1. POTASSIUM ACETATE [Concomitant]
  2. FORTEO [Suspect]
     Indication: OSTEOPOROSIS
     Dosage: UNK, UNK
     Dates: start: 20060501
  3. FORTEO [Suspect]
  4. CYMBALTA [Suspect]
     Indication: DEPRESSION
     Dates: start: 20060501, end: 20060801
  5. VERAPAMIL [Concomitant]
     Indication: HYPERTENSION
  6. TOPAMAX                                 /AUS/ [Concomitant]
     Indication: MIGRAINE
  7. VITAMINS-MINERALS THERAPEUTIC [Concomitant]
  8. DURAGESIC-100 [Concomitant]
     Indication: PAIN

REACTIONS (18)
  - ANXIETY [None]
  - ASTHENIA [None]
  - BALANCE DISORDER [None]
  - CONTUSION [None]
  - DENTAL CARIES [None]
  - DEPRESSED LEVEL OF CONSCIOUSNESS [None]
  - EAR INFECTION [None]
  - FACE INJURY [None]
  - FALL [None]
  - FEELING ABNORMAL [None]
  - GENERAL PHYSICAL HEALTH DETERIORATION [None]
  - HAIR DISORDER [None]
  - HAIR TEXTURE ABNORMAL [None]
  - INSOMNIA [None]
  - LOSS OF CONSCIOUSNESS [None]
  - MOUTH INJURY [None]
  - TOOTH INJURY [None]
  - VISUAL ACUITY REDUCED [None]
